FAERS Safety Report 6334706-4 (Version None)
Quarter: 2009Q3

REPORT INFORMATION
  Report Type: 
  Country: None (occurrence: None)
  Receive Date: 20090831
  Receipt Date: 20090820
  Transmission Date: 20100115
  Serious: Yes (Hospitalization)
  Sender: FDA-Public Use
  Company Number: CA-ELI_LILLY_AND_COMPANY-CA200908004707

PATIENT
  Age: 71 Year
  Sex: Female

DRUGS (6)
  1. FORTEO [Suspect]
     Indication: OSTEOPOROSIS
     Dosage: 20 UG, DAILY (1/D)
     Route: 058
     Dates: start: 20081126, end: 20081211
  2. FORTEO [Suspect]
     Dosage: 20 UG, DAILY (1/D)
     Dates: start: 20090201, end: 20090801
  3. ACTONEL [Concomitant]
     Dates: end: 20080101
  4. CALCIUM [Concomitant]
  5. VITAMIN D [Concomitant]
  6. OTHER ANTIHYPERTENSIVES [Concomitant]

REACTIONS (2)
  - FATIGUE [None]
  - MALAISE [None]
